FAERS Safety Report 8283429-3 (Version None)
Quarter: 2012Q2

REPORT INFORMATION
  Report Type: 
  Country: None (occurrence: None)
  Receive Date: 20120413
  Receipt Date: 20120406
  Transmission Date: 20120825
  Serious: Yes (Hospitalization)
  Sender: FDA-Public Use
  Company Number: US-ELI_LILLY_AND_COMPANY-US201204002803

PATIENT
  Sex: Female

DRUGS (2)
  1. HUMALOG [Suspect]
     Indication: TYPE 1 DIABETES MELLITUS
     Dosage: UNK, PRN
     Route: 058
     Dates: start: 20111001
  2. LANTUS [Concomitant]
     Dosage: UNK

REACTIONS (3)
  - MALAISE [None]
  - DIABETIC KETOACIDOSIS [None]
  - DRUG ADMINISTRATION ERROR [None]
